FAERS Safety Report 5384245-2 (Version None)
Quarter: 2007Q3

REPORT INFORMATION
  Report Type: 
  Country: None (occurrence: None)
  Receive Date: 20070710
  Receipt Date: 20060620
  Transmission Date: 20080115
  Serious: Yes (Other)
  Sender: FDA-Public Use
  Company Number: 2006-00931

PATIENT
  Age: 69 Year
  Sex: Male

DRUGS (14)
  1. VELCADE [Suspect]
     Indication: MULTIPLE MYELOMA
     Dosage: 1.00 MG/M2, 0.70 MG/M2
     Dates: start: 20050620, end: 20060410
  2. VELCADE [Suspect]
     Indication: MULTIPLE MYELOMA
     Dosage: 1.00 MG/M2, 0.70 MG/M2
     Dates: start: 20060509
  3. NEURONTIN [Concomitant]
  4. ALLOPURINOL [Concomitant]
  5. ZOCOR [Concomitant]
  6. FLOMAX [Concomitant]
  7. PACERONE [Concomitant]
  8. SYNTHROID [Concomitant]
  9. CLINDAMYCIN (CLINDAMYCIN) [Concomitant]
  10. ASPIRIN [Concomitant]
  11. KEFLEX [Concomitant]
  12. LEVAQUIN [Concomitant]
  13. ZOMETA [Concomitant]
  14. DECADRON [Concomitant]

REACTIONS (1)
  - RASH [None]
